FAERS Safety Report 7532976-8 (Version None)
Quarter: 2011Q2

REPORT INFORMATION
  Report Type: 
  Country: None (occurrence: None)
  Receive Date: 20110608
  Receipt Date: 20110529
  Transmission Date: 20111010
  Serious: Yes (Other)
  Sender: FDA-Public Use
  Company Number: US-PURDUE-USA-2011-0069711

PATIENT
  Sex: Female
  Weight: 136.5 kg

DRUGS (3)
  1. BUTRANS [Suspect]
     Indication: OSTEOARTHRITIS
  2. BUTRANS [Suspect]
     Indication: TENDON INJURY
     Dosage: 10 MCG/HR, WEEKLY
     Dates: start: 20110314
  3. BUTRANS [Suspect]
     Indication: FIBROMYALGIA

REACTIONS (3)
  - PRODUCT ADHESION ISSUE [None]
  - DYSPNOEA [None]
  - SLEEP APNOEA SYNDROME [None]
